FAERS Safety Report 24044623 (Version 2)
Quarter: 2024Q3

REPORT INFORMATION
  Report Type: Spontaneous
  Country: US (occurrence: US)
  Receive Date: 20240703
  Receipt Date: 20240814
  Transmission Date: 20241016
  Serious: No
  Sender: MICRO LABS
  Company Number: US-862174955-ML2024-03600

PATIENT
  Sex: Female

DRUGS (1)
  1. ACETAZOLAMIDE [Suspect]
     Active Substance: ACETAZOLAMIDE
     Indication: Product used for unknown indication
     Route: 048

REACTIONS (1)
  - Abnormal faeces [Unknown]
